FAERS Safety Report 5036597-0 (Version None)
Quarter: 2006Q2

REPORT INFORMATION
  Report Type: 
  Country: None (occurrence: None)
  Receive Date: 20060531
  Receipt Date: 20060425
  Transmission Date: 20061013
  Serious: No
  Sender: FDA-Public Use
  Company Number: PHEH2006US04269

PATIENT
  Age: 73 Year
  Sex: Male
  Weight: 66.7 kg

DRUGS (9)
  1. EXJADE [Suspect]
     Indication: BLOOD IRON INCREASED
     Dosage: 1000 MG, QD, ORAL
     Route: 048
     Dates: start: 20060310
  2. EXJADE [Suspect]
  3. LOPRESSOR [Concomitant]
  4. ASPIRIN [Concomitant]
  5. PLAVIX [Concomitant]
  6. PRILOSEC [Concomitant]
  7. SYNTHROID [Concomitant]
  8. LASIX [Concomitant]
  9. NITROGLYCERIN TRANSDERMAL SYSTEM (GLYCERYL TRINITRATE) [Concomitant]

REACTIONS (3)
  - DIARRHOEA [None]
  - DIZZINESS [None]
  - FLATULENCE [None]
